FAERS Safety Report 9273102 (Version 1)
Quarter: 2013Q2

REPORT INFORMATION
  Report Type: Spontaneous
  Country: US (occurrence: US)
  Receive Date: 20130506
  Receipt Date: 20130506
  Transmission Date: 20140414
  Serious: No
  Sender: FDA-Public Use
  Company Number: US-ASTRAZENECA-2012SE30384

PATIENT
  Age: 87 Year
  Sex: Female

DRUGS (7)
  1. PRILOSEC OTC [Suspect]
     Route: 002
     Dates: start: 20120501, end: 20120501
  2. LIPITOR [Concomitant]
  3. AVOXAL [Concomitant]
  4. SLEEPING MEDICATION [Concomitant]
  5. ASPIRIN [Concomitant]
  6. VITAMINS NOS [Concomitant]
  7. MICARDIS [Concomitant]
     Indication: HYPERTENSION

REACTIONS (6)
  - Drug hypersensitivity [Recovered/Resolved]
  - Swollen tongue [Recovered/Resolved]
  - Erythema [Recovered/Resolved]
  - Swelling face [Recovered/Resolved]
  - Rash [Recovered/Resolved]
  - Documented hypersensitivity to administered drug [Unknown]
